FAERS Safety Report 19893343 (Version 2)
Quarter: 2021Q4

REPORT INFORMATION
  Report Type: Spontaneous
  Country: US (occurrence: US)
  Receive Date: 20210928
  Receipt Date: 20211125
  Transmission Date: 20220303
  Serious: No
  Sender: FDA-Public Use
  Company Number: US-SA-SAC20210923000493

PATIENT
  Sex: Female

DRUGS (1)
  1. FABRAZYME [Suspect]
     Active Substance: AGALSIDASE BETA
     Indication: Metabolic disorder
     Dosage: 55 MG (5 MG AND 35 MG), QOW
     Route: 042
     Dates: start: 201611

REACTIONS (3)
  - Malaise [Unknown]
  - Intentional dose omission [Unknown]
  - Product use in unapproved indication [Unknown]
